FAERS Safety Report 14336078 (Version 7)
Quarter: 2018Q1

REPORT INFORMATION
  Report Type: Report from Study
  Country: US (occurrence: US)
  Receive Date: 20171229
  Receipt Date: 20180220
  Transmission Date: 20180509
  Serious: Yes (Other)
  Sender: FDA-Public Use
  Company Number: PHHO2017US017403

PATIENT
  Age: 57 Year
  Sex: Male
  Weight: 131.3 kg

DRUGS (7)
  1. GSK1120212 [Suspect]
     Active Substance: TRAMETINIB
     Dosage: UNK
     Route: 048
     Dates: start: 20171117
  2. GSK1120212 [Suspect]
     Active Substance: TRAMETINIB
     Dosage: NO TREATMENT
     Route: 048
     Dates: start: 20171115, end: 20171116
  3. DEXAMETHASONE. [Suspect]
     Active Substance: DEXAMETHASONE
     Indication: PRODUCT USED FOR UNKNOWN INDICATION
     Dosage: UNK
     Route: 065
     Dates: start: 20170216
  4. GSK1120212 [Suspect]
     Active Substance: TRAMETINIB
     Indication: HAIRY CELL LEUKAEMIA
     Dosage: 2.0 MG, UNK
     Route: 048
     Dates: start: 20161205
  5. GSK2118436 [Suspect]
     Active Substance: DABRAFENIB
     Indication: HAIRY CELL LEUKAEMIA
     Dosage: 300 MG, UNK
     Route: 048
     Dates: start: 20161205
  6. GSK2118436 [Suspect]
     Active Substance: DABRAFENIB
     Dosage: UNK
     Route: 048
     Dates: start: 20171116
  7. GSK2118436 [Suspect]
     Active Substance: DABRAFENIB
     Dosage: NO TREATMENT
     Route: 048
     Dates: start: 20171115, end: 20171115

REACTIONS (2)
  - Hypotension [Recovered/Resolved]
  - Pulmonary granuloma [Recovering/Resolving]

NARRATIVE: CASE EVENT DATE: 20171115
